FAERS Safety Report 7458983-1 (Version None)
Quarter: 2011Q2

REPORT INFORMATION
  Report Type: 
  Country: None (occurrence: None)
  Receive Date: 20110504
  Receipt Date: 20110422
  Transmission Date: 20111010
  Serious: Yes (Death, Hospitalization, Other)
  Sender: FDA-Public Use
  Company Number: US-CELGENEUS-163-21880-11043053

PATIENT
  Age: 77 Year
  Sex: Male

DRUGS (6)
  1. LORAZEPAM [Concomitant]
     Route: 065
  2. ONDANSETRON [Concomitant]
     Route: 065
  3. MORPHINE [Concomitant]
     Route: 065
  4. DEXAMETHASONE [Concomitant]
     Indication: MULTIPLE MYELOMA
     Route: 065
     Dates: start: 20100201
  5. BISACODYL [Concomitant]
     Route: 065
  6. REVLIMID [Suspect]
     Indication: MULTIPLE MYELOMA
     Dosage: 10 MILLIGRAM
     Route: 048
     Dates: start: 20100201, end: 20100701

REACTIONS (3)
  - PANCYTOPENIA [None]
  - DEATH [None]
  - RENAL FAILURE CHRONIC [None]
